FAERS Safety Report 8768324 (Version 2)
Quarter: 2015Q3

REPORT INFORMATION
  Report Type: Report from Study
  Country: US (occurrence: US)
  Receive Date: 20120905
  Receipt Date: 20150702
  Transmission Date: 20151125
  Serious: Yes (Death)
  Sender: FDA-Public Use
  Company Number: US-ROCHE-1096398

PATIENT
  Sex: Female
  Weight: 44.5 kg

DRUGS (4)
  1. TARCEVA [Suspect]
     Active Substance: ERLOTINIB HYDROCHLORIDE
     Indication: HEPATIC CANCER
     Route: 048
     Dates: start: 20050805
  2. AVASTIN [Suspect]
     Active Substance: BEVACIZUMAB
     Indication: CHOLANGIOCARCINOMA
  3. AVASTIN [Suspect]
     Active Substance: BEVACIZUMAB
     Indication: HEPATIC CANCER
     Route: 042
     Dates: start: 20050805
  4. TARCEVA [Suspect]
     Active Substance: ERLOTINIB HYDROCHLORIDE
     Indication: CHOLANGIOCARCINOMA

REACTIONS (3)
  - Metastases to thorax [Unknown]
  - Death [Fatal]
  - Off label use [Unknown]
